FAERS Safety Report 14224880 (Version 4)
Quarter: 2018Q2

REPORT INFORMATION
  Report Type: Spontaneous
  Country: IT (occurrence: IT)
  Receive Date: 20171127
  Receipt Date: 20180630
  Transmission Date: 20180711
  Serious: Yes (Other)
  Sender: FDA-Public Use
  Company Number: IT-AUROBINDO-AUR-APL-2017-43533

PATIENT
  Age: 40 Year
  Sex: Female

DRUGS (3)
  1. CARBOLITHIUM [Suspect]
     Active Substance: LITHIUM CARBONATE
     Indication: PSYCHOTIC DISORDER
     Dosage: 1 DOSAGE FORM, DAILY, UNK UNK, QD)
     Route: 048
     Dates: start: 20170101, end: 20170203
  2. WELLBUTRIN [Suspect]
     Active Substance: BUPROPION HYDROCHLORIDE
     Indication: PSYCHOTIC DISORDER
     Dosage: 150 MG, QD
     Route: 048
     Dates: start: 20170101, end: 20170203
  3. GABAPENTIN. [Suspect]
     Active Substance: GABAPENTIN
     Indication: PSYCHOTIC DISORDER
     Dosage: 1 DOSAGE FORM, DAILY, (UNK, QD)
     Route: 048
     Dates: start: 20170101, end: 20170203

REACTIONS (3)
  - Fall [Recovering/Resolving]
  - Injury [Recovering/Resolving]
  - Sopor [Recovering/Resolving]

NARRATIVE: CASE EVENT DATE: 20170203
